FAERS Safety Report 4498014-9 (Version None)
Quarter: 2004Q4

REPORT INFORMATION
  Report Type: 
  Country: None (occurrence: None)
  Receive Date: 20041109
  Receipt Date: 20041109
  Transmission Date: 20050328
  Serious: Yes (Life-Threatening, Disabling)
  Sender: FDA-Public Use
  Company Number: None

PATIENT
  Age: 51 Year
  Sex: Female
  Weight: 97.0698 kg

DRUGS (2)
  1. LIPITOR [Suspect]
     Indication: BLOOD CHOLESTEROL INCREASED
     Dosage: ONE TABLET DAILY
     Dates: start: 19990101, end: 20040101
  2. LIPITOR [Suspect]
     Indication: BLOOD CHOLESTEROL INCREASED
     Dosage: ONE TABLET DAILY
     Dates: start: 20000101, end: 20040101

REACTIONS (8)
  - AMNESIA [None]
  - DEPRESSION [None]
  - DRY SKIN [None]
  - FIBROMYALGIA [None]
  - HYPERSENSITIVITY [None]
  - INSOMNIA [None]
  - MUSCLE DISORDER [None]
  - PRURITUS [None]
